FAERS Safety Report 10971415 (Version 1)
Quarter: 2015Q1

REPORT INFORMATION
  Report Type: Spontaneous
  Country: US (occurrence: US)
  Receive Date: 20150331
  Receipt Date: 20150331
  Transmission Date: 20150721
  Serious: Yes (Other)
  Sender: FDA-Public Use
  Company Number: US-BAYER-2015-062302

PATIENT
  Age: 72 Year
  Sex: Female

DRUGS (2)
  1. BAYER GENUINE ASPIRIN [Suspect]
     Active Substance: ASPIRIN
     Dosage: UNK
  2. APIXABAN [Suspect]
     Active Substance: APIXABAN
     Dosage: 5 MG, BID

REACTIONS (1)
  - Cerebrovascular accident [Unknown]
